FAERS Safety Report 18843924 (Version 1)
Quarter: 2021Q1

REPORT INFORMATION
  Report Type: Report from Study
  Country: IT (occurrence: IT)
  Receive Date: 20210203
  Receipt Date: 20210203
  Transmission Date: 20210419
  Serious: No
  Sender: FDA-Public Use
  Company Number: IT-EXELIXIS-CABO-19026062

PATIENT
  Sex: Male

DRUGS (2)
  1. CABOMETYX [Suspect]
     Active Substance: CABOZANTINIB S-MALATE
     Dosage: 40 MG
     Route: 048
  2. CABOMETYX [Suspect]
     Active Substance: CABOZANTINIB S-MALATE
     Indication: METASTATIC RENAL CELL CARCINOMA
     Dosage: 60 MG
     Route: 048

REACTIONS (10)
  - Oral mucosal eruption [Unknown]
  - Diarrhoea [Unknown]
  - Weight decreased [Unknown]
  - Diplopia [Unknown]
  - Anaemia [Unknown]
  - Peripheral swelling [Unknown]
  - Fatigue [Unknown]
  - Abscess limb [Unknown]
  - Skin ulcer [Unknown]
  - Sensory disturbance [Unknown]
